FAERS Safety Report 7780706-7 (Version None)
Quarter: 2011Q3

REPORT INFORMATION
  Report Type: 
  Country: None (occurrence: None)
  Receive Date: 20110927
  Receipt Date: 20110509
  Transmission Date: 20111222
  Serious: No
  Sender: FDA-Public Use
  Company Number: US-BRISTOL-MYERS SQUIBB COMPANY-15662737

PATIENT
  Age: 37 Year
  Sex: Female

DRUGS (7)
  1. METFORMIN HCL [Concomitant]
  2. LUMIGAN [Concomitant]
     Dosage: EYE DROPS
  3. AVAPRO [Suspect]
     Indication: HYPERTENSION
     Dosage: 23MAR2011.
     Route: 048
     Dates: start: 20081001
  4. LEVONORGESTREL [Concomitant]
  5. METOPROLOL TARTRATE [Concomitant]
  6. SYNTHROID [Concomitant]
  7. VYVANSE [Concomitant]

REACTIONS (2)
  - VISUAL IMPAIRMENT [None]
  - BLOOD PRESSURE INCREASED [None]
